FAERS Safety Report 9960999 (Version 1)
Quarter: 2014Q1

REPORT INFORMATION
  Report Type: Spontaneous
  Country: US (occurrence: US)
  Receive Date: 20140305
  Receipt Date: 20140305
  Transmission Date: 20141002
  Serious: No
  Sender: FDA-Public Use
  Company Number: US-ABBVIE-13P-163-1108140-00

PATIENT
  Sex: Female
  Weight: 77.18 kg

DRUGS (11)
  1. HUMIRA [Suspect]
     Indication: CROHN^S DISEASE
     Route: 058
     Dates: start: 20130615, end: 20130615
  2. LIALDA [Concomitant]
     Indication: CROHN^S DISEASE
  3. CYMBALTA [Concomitant]
     Indication: BONE PAIN
  4. CYMBALTA [Concomitant]
     Indication: DEPRESSION
  5. NEXIUM [Concomitant]
     Indication: GASTROOESOPHAGEAL REFLUX DISEASE
  6. DICYCLOMINE [Concomitant]
     Indication: CROHN^S DISEASE
  7. SUMATRIPTAN SUCCINATE [Concomitant]
     Indication: MIGRAINE
  8. ZOFRAN [Concomitant]
     Indication: NAUSEA
  9. FLUTICASONE [Concomitant]
     Indication: HYPERSENSITIVITY
     Route: 055
  10. OXYCODONE [Concomitant]
     Indication: PAIN
  11. FENTANYL [Concomitant]
     Indication: PAIN

REACTIONS (2)
  - Device malfunction [Unknown]
  - Injection site pain [Recovered/Resolved]
